FAERS Safety Report 12618514 (Version 2)
Quarter: 2016Q3

REPORT INFORMATION
  Report Type: Spontaneous
  Country: US (occurrence: US)
  Receive Date: 20160803
  Receipt Date: 20160810
  Transmission Date: 20161109
  Serious: Yes (Hospitalization, Other)
  Sender: FDA-Public Use
  Company Number: US-GLAXOSMITHKLINE-US2016111451

PATIENT
  Sex: Female

DRUGS (10)
  1. PEPCID [Concomitant]
     Active Substance: FAMOTIDINE
  2. PROAIR HFA [Concomitant]
     Active Substance: ALBUTEROL SULFATE
  3. ADVAIR DISKUS [Suspect]
     Active Substance: FLUTICASONE PROPIONATE\SALMETEROL XINAFOATE
     Indication: ASTHMA
     Dosage: 1 PUFF(S), BID
     Route: 055
     Dates: start: 2001
  4. LIALDA [Concomitant]
     Active Substance: MESALAMINE
  5. CLARITHROMYCIN. [Concomitant]
     Active Substance: CLARITHROMYCIN
  6. AMLODIPINE [Concomitant]
     Active Substance: AMLODIPINE BESYLATE
  7. HYDROCODONE [Concomitant]
     Active Substance: HYDROCODONE
  8. LEVETIRACETAM. [Concomitant]
     Active Substance: LEVETIRACETAM
  9. ASPIRIN. [Concomitant]
     Active Substance: ASPIRIN
  10. ATENOLOL. [Concomitant]
     Active Substance: ATENOLOL

REACTIONS (11)
  - Irritable bowel syndrome [Not Recovered/Not Resolved]
  - Gastric disorder [Unknown]
  - Cough [Not Recovered/Not Resolved]
  - Staphylococcal infection [Unknown]
  - Clostridium difficile infection [Unknown]
  - Knee arthroplasty [Unknown]
  - Colitis [Not Recovered/Not Resolved]
  - Arthropathy [Not Recovered/Not Resolved]
  - Bacterial infection [Recovered/Resolved]
  - Meningioma [Not Recovered/Not Resolved]
  - Lung neoplasm [Recovered/Resolved]

NARRATIVE: CASE EVENT DATE: 2002
